FAERS Safety Report 14746126 (Version 1)
Quarter: 2018Q2

REPORT INFORMATION
  Report Type: Spontaneous
  Country: US (occurrence: US)
  Receive Date: 20180411
  Receipt Date: 20180411
  Transmission Date: 20180711
  Serious: Yes (Death, Other)
  Sender: FDA-Public Use
  Company Number: US-DRREDDYS-USA/USA/18/0097623

PATIENT
  Age: 62 Year
  Sex: Female

DRUGS (2)
  1. DECITABINE. [Suspect]
     Active Substance: DECITABINE
     Indication: MYELODYSPLASTIC SYNDROME
     Dosage: FOR 2 CYCLES
     Route: 065
  2. DECITABINE. [Suspect]
     Active Substance: DECITABINE
     Route: 065

REACTIONS (2)
  - Sepsis [Fatal]
  - Cardiomyopathy [Unknown]
